FAERS Safety Report 5773081-0 (Version None)
Quarter: 2008Q2

REPORT INFORMATION
  Report Type: 
  Country: None (occurrence: None)
  Receive Date: 20080611
  Receipt Date: 20080205
  Transmission Date: 20081010
  Serious: No
  Sender: FDA-Public Use
  Company Number: ADE# 08-018

PATIENT
  Age: 59 Year
  Sex: Male
  Weight: 68.0396 kg

DRUGS (3)
  1. BACLOFEN [Suspect]
     Indication: SPINAL CORD INJURY
     Dosage: 20MG 4XDAILY
     Dates: start: 19820101, end: 20080201
  2. PRILOSEC [Concomitant]
  3. DANTRIUM [Concomitant]

REACTIONS (3)
  - DRUG INEFFECTIVE [None]
  - SOMNOLENCE [None]
  - THERAPEUTIC RESPONSE UNEXPECTED WITH DRUG SUBSTITUTION [None]
